FAERS Safety Report 18980616 (Version 1)
Quarter: 2021Q1

REPORT INFORMATION
  Report Type: Spontaneous
  Country: US (occurrence: US)
  Receive Date: 20210307
  Receipt Date: 20210307
  Transmission Date: 20210420
  Serious: Yes (Life-Threatening)
  Sender: FDA-Public Use
  Company Number: None

PATIENT
  Age: 26 Year
  Sex: Male
  Weight: 74.25 kg

DRUGS (2)
  1. FLAXSEED [Concomitant]
     Active Substance: FLAX SEED
  2. FINASTERIDE. [Suspect]
     Active Substance: FINASTERIDE
     Indication: ALOPECIA
     Dosage: QUANTITY:1 TABLET(S);?
     Route: 048
     Dates: start: 20200510, end: 20210218

REACTIONS (8)
  - Eye pruritus [None]
  - Abdominal pain upper [None]
  - Urine odour abnormal [None]
  - Oliguria [None]
  - Dry eye [None]
  - Urine abnormality [None]
  - Fatigue [None]
  - Peripheral swelling [None]

NARRATIVE: CASE EVENT DATE: 20210126
